FAERS Safety Report 9486458 (Version 1)
Quarter: 2013Q3

REPORT INFORMATION
  Report Type: Spontaneous
  Country: TR (occurrence: None)
  Receive Date: 20130823
  Receipt Date: 20130823
  Transmission Date: 20140515
  Serious: Yes (Hospitalization, Disabling)
  Sender: FDA-Public Use
  Company Number: 2013P1018623

PATIENT
  Age: 46 Year
  Sex: Female

DRUGS (6)
  1. LITHIUM [Suspect]
     Indication: BIPOLAR DISORDER
  2. RISPERIDONE [Suspect]
     Indication: BIPOLAR DISORDER
  3. QUETIAPINE [Suspect]
     Indication: BIPOLAR DISORDER
  4. ARIPIPRAZOLE [Suspect]
     Indication: BIPOLAR DISORDER
  5. UNSPECIFIED ANTIBIOTICS [Suspect]
     Indication: URINARY TRACT INFECTION
  6. PAROXETINE [Concomitant]

REACTIONS (23)
  - Neurotoxicity [None]
  - Extrapyramidal disorder [None]
  - Urinary tract infection [None]
  - Musculoskeletal stiffness [None]
  - Confusional state [None]
  - Diarrhoea [None]
  - Muscle rigidity [None]
  - Hyporeflexia [None]
  - Drug level increased [None]
  - Drug interaction [None]
  - Status epilepticus [None]
  - Hypotension [None]
  - Respiratory failure [None]
  - Renal failure [None]
  - Iron deficiency anaemia [None]
  - Pneumonia [None]
  - Blood creatine phosphokinase increased [None]
  - Mutism [None]
  - Myoclonus [None]
  - Quadriparesis [None]
  - Polyneuropathy [None]
  - Ataxia [None]
  - Toxicity to various agents [None]
